FAERS Safety Report 21403817 (Version 2)
Quarter: 2022Q4

REPORT INFORMATION
  Report Type: Spontaneous
  Country: IQ (occurrence: IQ)
  Receive Date: 20221003
  Receipt Date: 20221107
  Transmission Date: 20230113
  Serious: Yes (Hospitalization, Other)
  Sender: FDA-Public Use
  Company Number: IQ-NOVARTISPH-NVSC2022IQ211569

PATIENT
  Age: 20 Year
  Sex: Male
  Weight: 85 kg

DRUGS (30)
  1. MYCOPHENOLATE MOFETIL [Suspect]
     Active Substance: MYCOPHENOLATE MOFETIL
     Indication: C3 glomerulopathy
     Dosage: 2 G, QD
     Route: 065
     Dates: start: 20181226
  2. MYCOPHENOLATE MOFETIL [Suspect]
     Active Substance: MYCOPHENOLATE MOFETIL
     Dosage: 3 G, QD
     Route: 065
     Dates: start: 20190227
  3. RITUXIMAB [Suspect]
     Active Substance: RITUXIMAB
     Indication: C3 glomerulopathy
     Dosage: 3 DOSAGE FORM
     Route: 065
     Dates: start: 20190715
  4. RITUXIMAB [Suspect]
     Active Substance: RITUXIMAB
     Dosage: 3 DOSAGE FORM
     Route: 065
     Dates: start: 20190731
  5. RITUXIMAB [Suspect]
     Active Substance: RITUXIMAB
     Dosage: 3 DOSAGE FORM
     Route: 065
     Dates: start: 20190909
  6. PREDNISOLONE [Suspect]
     Active Substance: PREDNISOLONE
     Indication: C3 glomerulopathy
     Dosage: 60 MG
     Route: 065
     Dates: start: 20181221
  7. PREDNISOLONE [Suspect]
     Active Substance: PREDNISOLONE
     Dosage: 40 MG, QD
     Route: 065
     Dates: start: 20190111
  8. PREDNISOLONE [Suspect]
     Active Substance: PREDNISOLONE
     Dosage: 5 MG, QD
     Route: 065
  9. PREDNISOLONE [Suspect]
     Active Substance: PREDNISOLONE
     Dosage: 25 MG, (ON TAPERING)
     Route: 065
  10. METHYLPREDNISOLONE [Suspect]
     Active Substance: METHYLPREDNISOLONE
     Indication: Product used for unknown indication
     Dosage: 1 G
     Route: 065
  11. DILTIAZEM [Suspect]
     Active Substance: DILTIAZEM
     Indication: Product used for unknown indication
     Dosage: 90 MG, TID
     Route: 065
  12. DILTIAZEM [Suspect]
     Active Substance: DILTIAZEM
     Dosage: 270 MG
     Route: 065
  13. CALCIUM CARBONATE [Suspect]
     Active Substance: CALCIUM CARBONATE
     Indication: Product used for unknown indication
     Dosage: UNK
     Route: 065
  14. LIORESAL [Suspect]
     Active Substance: BACLOFEN
     Indication: Product used for unknown indication
     Dosage: 10 MG
     Route: 065
  15. METOLAZONE [Suspect]
     Active Substance: METOLAZONE
     Indication: Product used for unknown indication
     Dosage: 5 MG
     Route: 065
  16. PROGRAF [Concomitant]
     Active Substance: TACROLIMUS
     Indication: Product used for unknown indication
     Dosage: 4 MG
     Route: 065
     Dates: start: 20200312, end: 20210714
  17. ZESTRIL [Concomitant]
     Active Substance: LISINOPRIL
     Indication: Product used for unknown indication
     Dosage: 20 MG
     Route: 065
  18. BUMETANIDE [Concomitant]
     Active Substance: BUMETANIDE
     Indication: Product used for unknown indication
     Dosage: 1 MG
     Route: 065
  19. ASPIRIN [Concomitant]
     Active Substance: ASPIRIN
     Indication: Product used for unknown indication
     Dosage: 100 MG
     Route: 065
  20. LIPITOR [Concomitant]
     Active Substance: ATORVASTATIN CALCIUM
     Indication: Product used for unknown indication
     Dosage: 40 MG
     Route: 065
  21. FEBUXOSTAT [Concomitant]
     Active Substance: FEBUXOSTAT
     Indication: Product used for unknown indication
     Dosage: 100 MG
     Route: 065
  22. FEBUXOSTAT [Concomitant]
     Active Substance: FEBUXOSTAT
     Dosage: 5 MG
     Route: 065
  23. FEBUXOSTAT [Concomitant]
     Active Substance: FEBUXOSTAT
     Dosage: 80 MG
     Route: 065
  24. FOLIC ACID [Concomitant]
     Active Substance: FOLIC ACID
     Indication: Product used for unknown indication
     Dosage: 5 MG
     Route: 065
  25. VITAMIN D3 [Concomitant]
     Active Substance: CHOLECALCIFEROL
     Indication: Product used for unknown indication
     Dosage: 50000 IU, QW
     Route: 065
  26. OMEPRAZOLE [Concomitant]
     Active Substance: OMEPRAZOLE
     Indication: Product used for unknown indication
     Dosage: UNK
     Route: 065
  27. ACETAMINOPHEN [Concomitant]
     Active Substance: ACETAMINOPHEN
     Indication: Product used for unknown indication
     Dosage: UNK
     Route: 065
  28. CARDURA [Concomitant]
     Active Substance: DOXAZOSIN MESYLATE
     Indication: Product used for unknown indication
     Dosage: 1 MG
     Route: 065
  29. EPREX [Concomitant]
     Active Substance: ERYTHROPOIETIN
     Indication: Product used for unknown indication
     Dosage: UNK, BIW
     Route: 065
  30. EPREX [Concomitant]
     Active Substance: ERYTHROPOIETIN
     Dosage: UNK, BID
     Route: 065

REACTIONS (30)
  - COVID-19 [Recovered/Resolved]
  - Pyrexia [Recovered/Resolved]
  - Diarrhoea [Recovered/Resolved]
  - Cough [Recovered/Resolved]
  - Nausea [Recovered/Resolved]
  - Myalgia [Recovered/Resolved]
  - Fatigue [Recovered/Resolved]
  - Nephrotic syndrome [Unknown]
  - Acute kidney injury [Recovered/Resolved]
  - Glomerulonephritis chronic [Recovered/Resolved]
  - Oedema peripheral [Unknown]
  - Eyelid oedema [Unknown]
  - Proteinuria [Unknown]
  - Blood creatinine increased [Unknown]
  - Oedema [Unknown]
  - Decreased appetite [Unknown]
  - Complement factor C3 decreased [Unknown]
  - Haematuria [Unknown]
  - Hypoalbuminaemia [Unknown]
  - Hyperlipidaemia [Unknown]
  - Abdominal distension [Unknown]
  - Tachycardia [Unknown]
  - Pollakiuria [Unknown]
  - Lethargy [Unknown]
  - Muscle spasms [Unknown]
  - Anaemia [Unknown]
  - Leukocytosis [Unknown]
  - Blood potassium increased [Unknown]
  - Drug ineffective [Unknown]
  - Product use in unapproved indication [Unknown]

NARRATIVE: CASE EVENT DATE: 20181026
